FAERS Safety Report 10398876 (Version 1)
Quarter: 2014Q3

REPORT INFORMATION
  Report Type: Spontaneous
  Country: US (occurrence: None)
  Receive Date: 20140819
  Receipt Date: 20140819
  Transmission Date: 20150326
  Serious: Yes (Other)
  Sender: FDA-Public Use
  Company Number: ADR-2014-01447

PATIENT
  Sex: Male

DRUGS (4)
  1. MORPHINE [Concomitant]
     Active Substance: MORPHINE
     Route: 048
  2. BUPIVACAINE INTRATHECAL [Suspect]
     Active Substance: BUPIVACAINE
  3. BACLOFEN INTRATHECAL [Suspect]
     Active Substance: BACLOFEN
     Indication: SURGERY
  4. FENTANYL INTRATHECAL [Suspect]
     Active Substance: FENTANYL

REACTIONS (10)
  - Device issue [None]
  - Spinal column stenosis [None]
  - Pain [None]
  - Fall [None]
  - Incorrect route of drug administration [None]
  - Spinal disorder [None]
  - Device breakage [None]
  - Intervertebral disc protrusion [None]
  - Back disorder [None]
  - Intervertebral disc disorder [None]
